FAERS Safety Report 21907690 (Version 1)
Quarter: 2023Q1

REPORT INFORMATION
  Report Type: Report from Study
  Country: CN (occurrence: CN)
  Receive Date: 20230125
  Receipt Date: 20230125
  Transmission Date: 20230417
  Serious: Yes (Other)
  Sender: FDA-Public Use
  Company Number: CN-Accord-297865

PATIENT
  Age: 65 Year
  Sex: Male

DRUGS (3)
  1. AZACITIDINE [Suspect]
     Active Substance: AZACITIDINE
     Indication: Acute myeloid leukaemia
     Dosage: AT 2-3 LOCATIONS FOR 7 DAYS
     Route: 058
  2. VENETOCLAX [Suspect]
     Active Substance: VENETOCLAX
     Indication: Acute myeloid leukaemia
     Dosage: 200 MG ON THE SECOND DAY; 400  MG FROM THE THIRD DAY
  3. CYTARABINE [Suspect]
     Active Substance: CYTARABINE
     Indication: Acute myeloid leukaemia
     Dosage: LOW-DOSEY

REACTIONS (3)
  - Granulocytopenia [Unknown]
  - Thrombocytopenia [Unknown]
  - Pneumonia fungal [Unknown]
